FAERS Safety Report 7200383-3 (Version None)
Quarter: 2010Q4

REPORT INFORMATION
  Report Type: 
  Country: None (occurrence: None)
  Receive Date: 20101228
  Receipt Date: 20101214
  Transmission Date: 20110411
  Serious: Yes (Death)
  Sender: FDA-Public Use
  Company Number: GB-AMGEN-GBRCT2010004607

PATIENT

DRUGS (34)
  1. ETANERCEPT [Suspect]
     Indication: RHEUMATOID ARTHRITIS
     Dosage: 25 MG, 2 TIMES/WK
     Dates: start: 20080408, end: 20080509
  2. PARACETAMOL [Suspect]
  3. ADCAL [Concomitant]
  4. ALENDRONIC ACID [Concomitant]
  5. ASPIRIN [Concomitant]
  6. ASPIRIN [Concomitant]
     Dosage: 1 G, 4 HOURLY AS REQUIRED
  7. ATORVASTATIN [Concomitant]
  8. CO-CODAMOL [Concomitant]
  9. ARCOXIA [Concomitant]
  10. FOLIC ACID [Concomitant]
  11. FOLIC ACID [Concomitant]
     Dosage: 5 MG, UNK
     Route: 048
     Dates: start: 20100714
  12. FRUSEMIDE [Concomitant]
  13. LORAZEPAM [Concomitant]
  14. OMEPRAZOLE [Concomitant]
  15. OMEPRAZOLE [Concomitant]
     Dosage: 20 MG, UNK
     Route: 048
     Dates: start: 20100714
  16. SERETIDE ^GLAXO WELLCOME^ [Concomitant]
  17. DILTIAZEM HCL [Concomitant]
  18. DILTIAZEM HCL [Concomitant]
     Dosage: 200 MG, UNK
     Route: 048
     Dates: start: 20100714
  19. LEVOTHYROXINE [Concomitant]
  20. LEVOTHYROXINE [Concomitant]
     Dosage: 50 MG, UNK
     Route: 048
     Dates: start: 20100714
  21. SALAMOL EASI-BREATHE [Concomitant]
  22. SALAMOL EASI-BREATHE [Concomitant]
     Dosage: 2 PUFFS AS REQUIRED
  23. CYMBALTA [Concomitant]
  24. DONEPEZIL HCL [Concomitant]
  25. MINOCYCLINE HCL [Concomitant]
  26. SOLIFENACIN [Concomitant]
     Dosage: 10 MG, UNK
     Route: 048
     Dates: start: 20100714
  27. CALCICHEW-D3 [Concomitant]
     Dosage: 1 TAB
     Route: 048
     Dates: start: 20100714
  28. FERROUS FUMARATE [Concomitant]
     Dosage: 210 MG, UNK
     Route: 048
     Dates: start: 20100714
  29. MOVICOL [Concomitant]
     Dosage: 1 SACHET
     Route: 048
     Dates: start: 20100714
  30. ENSURE PLUS [Concomitant]
     Dosage: 220 ML, UNK
     Route: 048
     Dates: start: 20100714
  31. CIPROFLOXACIN [Concomitant]
     Dosage: 500 MG, UNK
     Route: 048
     Dates: start: 20100730
  32. DIAMORPHINE [Concomitant]
     Indication: PAIN
     Dosage: 2.5 MG, EVERY 4 HOURS
     Dates: start: 20100802
  33. PROCHLORPERAZINE [Concomitant]
     Indication: NAUSEA
     Dosage: 12.5 MG, EVERY 8 HOURS
     Dates: start: 20100802
  34. SALBUTAMOL [Concomitant]
     Dosage: UNK
     Route: 055
     Dates: start: 20100714

REACTIONS (4)
  - BRONCHOPNEUMONIA [None]
  - LUNG NEOPLASM MALIGNANT [None]
  - MYOCARDIAL ISCHAEMIA [None]
  - VASCULAR DEMENTIA [None]
